FAERS Safety Report 5879249-7 (Version None)
Quarter: 2008Q3

REPORT INFORMATION
  Report Type: 
  Country: None (occurrence: None)
  Receive Date: 20080912
  Receipt Date: 20080904
  Transmission Date: 20090109
  Serious: Yes (Hospitalization)
  Sender: FDA-Public Use
  Company Number: GB-AMGEN-US307033

PATIENT
  Sex: Female

DRUGS (2)
  1. ENBREL [Suspect]
     Indication: DRUG USE FOR UNKNOWN INDICATION
     Dosage: UNKNOWN
     Route: 058
     Dates: start: 20080821
  2. UNSPECIFIED ALLERGY MEDICATION [Concomitant]
     Route: 065

REACTIONS (4)
  - DYSPNOEA [None]
  - PANIC ATTACK [None]
  - PHARYNGEAL OEDEMA [None]
  - UNEVALUABLE EVENT [None]
